FAERS Safety Report 26039447 (Version 2)
Quarter: 2025Q4

REPORT INFORMATION
  Report Type: Spontaneous
  Country: EU (occurrence: EU)
  Receive Date: 20251113
  Receipt Date: 20251120
  Transmission Date: 20260118
  Serious: Yes (Other)
  Sender: AUROBINDO
  Company Number: EU-LRB-01093609

PATIENT
  Age: 53 Year
  Sex: Female
  Weight: 60 kg

DRUGS (4)
  1. CIPROFLOXACIN [Suspect]
     Active Substance: CIPROFLOXACIN
     Indication: Ovarian abscess
     Dosage: 500 MILLIGRAM
  2. CLINDAMYCIN [Suspect]
     Active Substance: CLINDAMYCIN
     Indication: Ovarian abscess
     Dosage: 300 MILLIGRAM
  3. METRONIDAZOLE [Suspect]
     Active Substance: METRONIDAZOLE
     Indication: Ovarian abscess
     Dosage: 500 MILLIGRAM, TWO TIMES A DAY
     Route: 065
     Dates: start: 20250809
  4. MEROPENEM [Suspect]
     Active Substance: MEROPENEM
     Indication: Ovarian abscess
     Dosage: 1000 MILLIGRAM
     Route: 065

REACTIONS (7)
  - Tendon discomfort [Not Recovered/Not Resolved]
  - Restlessness [Recovered/Resolved]
  - Eye discharge [Recovered/Resolved]
  - Hypogeusia [Not Recovered/Not Resolved]
  - Hyposmia [Not Recovered/Not Resolved]
  - Coordination abnormal [Not Recovered/Not Resolved]
  - Disturbance in attention [Recovering/Resolving]
